FAERS Safety Report 8397527-7 (Version None)
Quarter: 2012Q2

REPORT INFORMATION
  Report Type: 
  Country: None (occurrence: None)
  Receive Date: 20120531
  Receipt Date: 20120529
  Transmission Date: 20120825
  Serious: Yes (Other)
  Sender: FDA-Public Use
  Company Number: US-BAYER-2012-053310

PATIENT
  Age: 25 Year
  Sex: Female

DRUGS (1)
  1. MIRENA [Suspect]
     Indication: CONTRACEPTION
     Dosage: 20 ?G/D, CONT
     Route: 015
     Dates: start: 20081229

REACTIONS (6)
  - HEADACHE [None]
  - VAGINAL HAEMORRHAGE [None]
  - HYPOMENORRHOEA [None]
  - ABDOMINAL PAIN [None]
  - AMENORRHOEA [None]
  - FATIGUE [None]
